FAERS Safety Report 20140654 (Version 1)
Quarter: 2021Q4

REPORT INFORMATION
  Report Type: Spontaneous
  Country: BR (occurrence: BR)
  Receive Date: 20211202
  Receipt Date: 20211202
  Transmission Date: 20220303
  Serious: Yes (Other)
  Sender: FDA-Public Use
  Company Number: BR-NOVARTISPH-PHHY2019BR225815

PATIENT
  Age: 62 Year
  Sex: Female

DRUGS (4)
  1. TIMOLOL MALEATE\TRAVOPROST [Suspect]
     Active Substance: TIMOLOL MALEATE\TRAVOPROST
     Indication: Glaucoma
     Dosage: 1 GTT, QD (5 MONTHS AGO)
     Route: 031
  2. INSULIN NOS [Concomitant]
     Active Substance: INSULIN NOS
     Indication: Diabetes mellitus
     Dosage: 70 U/L, BID (40U/I BY THE MOIRNING AND 30 U/I BY THE EVENING) (22 YEARS)
     Route: 058
  3. ALBUTEROL [Concomitant]
     Active Substance: ALBUTEROL
     Indication: Asthma
     Dosage: 1 DF (ONE INHALER) (IN CRISIS) (5 YEARS AGO)
     Route: 055
  4. LOSARTAN [Concomitant]
     Active Substance: LOSARTAN
     Indication: Intraocular pressure increased
     Dosage: 1 MG, TID (43 YEARS AGO)
     Route: 048

REACTIONS (4)
  - Reflux gastritis [Recovering/Resolving]
  - Asthma [Recovering/Resolving]
  - Asphyxia [Recovering/Resolving]
  - Ocular hyperaemia [Not Recovered/Not Resolved]

NARRATIVE: CASE EVENT DATE: 20190821
